FAERS Safety Report 25364422 (Version 1)
Quarter: 2025Q2

REPORT INFORMATION
  Report Type: Spontaneous
  Country: DE (occurrence: DE)
  Receive Date: 20250527
  Receipt Date: 20250527
  Transmission Date: 20250717
  Serious: Yes (Other)
  Sender: PFIZER
  Company Number: None

PATIENT
  Age: 41 Year
  Sex: Female
  Weight: 88.7 kg

DRUGS (6)
  1. CYTOTEC [Suspect]
     Active Substance: MISOPROSTOL
     Indication: Off label use
     Route: 048
     Dates: start: 20250423, end: 20250423
  2. CYTOTEC [Suspect]
     Active Substance: MISOPROSTOL
     Indication: Endometrial ablation
  3. CYTOTEC [Suspect]
     Active Substance: MISOPROSTOL
     Indication: Myomectomy
  4. LAMOTRIGINE [Concomitant]
     Active Substance: LAMOTRIGINE
     Indication: Depression
     Dosage: 200 MG, 1X/DAY
     Route: 048
     Dates: start: 2023
  5. BUPROPION ZENTIVA [Concomitant]
     Indication: Depression
     Dosage: 300 MG, 1X/DAY
     Route: 048
     Dates: start: 2023
  6. OPIPRAMOL HYDROCHLORIDE [Concomitant]
     Active Substance: OPIPRAMOL HYDROCHLORIDE
     Indication: Anxiety
     Route: 048

REACTIONS (11)
  - Circulatory collapse [Unknown]
  - Abdominal pain lower [Recovered/Resolved]
  - Vaginal haemorrhage [Recovered/Resolved]
  - Diarrhoea [Recovered/Resolved]
  - Nausea [Recovered/Resolved]
  - Cold sweat [Recovered/Resolved]
  - Cardiovascular disorder [Recovered/Resolved]
  - Headache [Unknown]
  - Movement disorder [Unknown]
  - Product communication issue [Unknown]
  - Off label use [Unknown]

NARRATIVE: CASE EVENT DATE: 20250401
